FAERS Safety Report 8019842-9 (Version None)
Quarter: 2012Q1

REPORT INFORMATION
  Report Type: 
  Country: None (occurrence: None)
  Receive Date: 20120103
  Receipt Date: 20111224
  Transmission Date: 20120608
  Serious: No
  Sender: FDA-Public Use
  Company Number: US-BAYER-2011-123451

PATIENT
  Age: 51 Year
  Sex: Male
  Weight: 83.447 kg

DRUGS (3)
  1. COREG [Concomitant]
  2. MAGNEVIST [Suspect]
     Indication: NUCLEAR MAGNETIC RESONANCE IMAGING BRAIN
     Dosage: 18 ML, ONCE
     Dates: start: 20111224, end: 20111224
  3. ASPIRIN [Concomitant]

REACTIONS (2)
  - COUGH [None]
  - VOMITING [None]
